FAERS Safety Report 16962216 (Version 1)
Quarter: 2019Q4

REPORT INFORMATION
  Report Type: Report from Study
  Country: GB (occurrence: GB)
  Receive Date: 20191025
  Receipt Date: 20191025
  Transmission Date: 20200122
  Serious: Yes (Other)
  Sender: FDA-Public Use
  Company Number: GB-SA-2014SA126766

PATIENT
  Age: 52 Year
  Sex: Female

DRUGS (21)
  1. FUCIBET [Concomitant]
     Dosage: UNK UNK,UNK
     Route: 061
     Dates: start: 20140203
  2. CALCIUM CHLORIDE. [Concomitant]
     Active Substance: CALCIUM CHLORIDE
     Dosage: 20 ML,QD
     Route: 065
     Dates: start: 20131117, end: 20131117
  3. AMOXICILLIN;CLAVULANATE POTASSIUM [Concomitant]
     Active Substance: AMOXICILLIN\CLAVULANATE POTASSIUM
     Dosage: 1875 MG,QD
     Route: 065
     Dates: start: 20131118, end: 20131123
  4. CYCLIZINE [Concomitant]
     Active Substance: CYCLIZINE
     Dosage: 150 UNK
     Route: 065
     Dates: start: 20150422
  5. DOCETAXEL. [Suspect]
     Active Substance: DOCETAXEL
     Indication: BREAST CANCER
     Dosage: 130 MG,Q3W
     Route: 042
     Dates: start: 20131108, end: 20131108
  6. NITROFURANTOIN. [Concomitant]
     Active Substance: NITROFURANTOIN
     Dosage: 200 MG,QD
     Route: 065
     Dates: start: 20140326, end: 20140402
  7. TRASTUZUMAB. [Suspect]
     Active Substance: TRASTUZUMAB
     Indication: BREAST CANCER
     Dosage: 8 MG/KG,Q3W
     Route: 042
     Dates: start: 20131108
  8. PERTUZUMAB. [Suspect]
     Active Substance: PERTUZUMAB
     Dosage: 420 MG,Q3W
     Route: 042
     Dates: start: 20131128
  9. DENOSUMAB [Concomitant]
     Active Substance: DENOSUMAB
     Indication: METASTASES TO BONE
     Dosage: 120 MG
     Route: 065
     Dates: start: 20131108, end: 20160406
  10. LOPERAMIDE [Concomitant]
     Active Substance: LOPERAMIDE
     Dosage: 2 MG,UNK
     Route: 065
     Dates: start: 20131114, end: 20140903
  11. LETROZOLE. [Concomitant]
     Active Substance: LETROZOLE
     Dosage: UNK
     Route: 065
     Dates: start: 20140613
  12. TRASTUZUMAB. [Suspect]
     Active Substance: TRASTUZUMAB
     Dosage: 357 MG,Q3W
     Route: 042
     Dates: start: 20131128, end: 20131128
  13. CLARITHROMYCIN. [Concomitant]
     Active Substance: CLARITHROMYCIN
     Dosage: 1000 MG,QD
     Route: 065
     Dates: start: 20131118, end: 20131123
  14. FUROSEMIDE. [Concomitant]
     Active Substance: FUROSEMIDE
     Dosage: 20 MG,QD
     Route: 065
     Dates: start: 20140409
  15. FLUCONAZOLE. [Concomitant]
     Active Substance: FLUCONAZOLE
     Dosage: UNK UNK, Q15D
     Route: 065
     Dates: start: 20131116, end: 20131130
  16. ORAMORPH SR SUSTAINED RELEASE [Concomitant]
     Active Substance: MORPHINE SULFATE
     Dosage: 10 MG
     Route: 065
     Dates: start: 201311
  17. PARACETAMOL [Concomitant]
     Active Substance: ACETAMINOPHEN
     Dosage: 1000 MG, QD
     Route: 065
     Dates: start: 201311
  18. MEROPENEM. [Concomitant]
     Active Substance: MEROPENEM
     Dosage: 1 G
     Route: 065
     Dates: start: 20131114, end: 20131118
  19. OMEPRAZOLE. [Concomitant]
     Active Substance: OMEPRAZOLE
     Dosage: 40 MG
     Route: 065
     Dates: start: 20131025
  20. PERTUZUMAB. [Suspect]
     Active Substance: PERTUZUMAB
     Indication: BREAST CANCER
     Dosage: 840 MG,Q3W
     Route: 042
     Dates: start: 20131107, end: 20131107
  21. CYCLIZINE [Concomitant]
     Active Substance: CYCLIZINE
     Dosage: 150 MG,QD
     Route: 065
     Dates: start: 20131107, end: 20131204

REACTIONS (1)
  - Ejection fraction decreased [Recovered/Resolved]

NARRATIVE: CASE EVENT DATE: 20140718
